FAERS Safety Report 7016444-8 (Version None)
Quarter: 2010Q3

REPORT INFORMATION
  Report Type: 
  Country: None (occurrence: None)
  Receive Date: 20100927
  Receipt Date: 20100922
  Transmission Date: 20110219
  Serious: Yes (Hospitalization)
  Sender: FDA-Public Use
  Company Number: A0881136A

PATIENT
  Age: 62 Year
  Sex: Male

DRUGS (3)
  1. OFATUMUMAB [Suspect]
     Dosage: 300MG MONTHLY
     Route: 042
     Dates: start: 20100726
  2. BENDAMUSTINE [Suspect]
     Dosage: 70MGM2 CYCLIC
     Route: 042
     Dates: start: 20100802
  3. ANTIHYPERTENSIVE [Concomitant]

REACTIONS (6)
  - ASTHENIA [None]
  - DECREASED APPETITE [None]
  - FAILURE TO THRIVE [None]
  - FATIGUE [None]
  - HYPOTENSION [None]
  - PYREXIA [None]
